FAERS Safety Report 25363503 (Version 2)
Quarter: 2025Q2

REPORT INFORMATION
  Report Type: Report from Study
  Country: US (occurrence: US)
  Receive Date: 20250527
  Receipt Date: 20250605
  Transmission Date: 20250716
  Serious: Yes (Other)
  Sender: ABBVIE
  Company Number: US-ABBVIE-6298128

PATIENT
  Sex: Female

DRUGS (1)
  1. RINVOQ [Suspect]
     Active Substance: UPADACITINIB
     Indication: Rheumatoid arthritis
     Route: 048

REACTIONS (6)
  - Gastric operation [Unknown]
  - Constipation [Unknown]
  - Abdominal pain upper [Unknown]
  - Intestinal perforation [Unknown]
  - Confusional state [Unknown]
  - Memory impairment [Unknown]
